FAERS Safety Report 7917063-9 (Version None)
Quarter: 2011Q4

REPORT INFORMATION
  Report Type: 
  Country: None (occurrence: None)
  Receive Date: 20111116
  Receipt Date: 20111102
  Transmission Date: 20120403
  Serious: Yes (Hospitalization, Other)
  Sender: FDA-Public Use
  Company Number: FR-PFIZER INC-K201101189

PATIENT
  Age: 63 Year
  Sex: Male

DRUGS (7)
  1. RAMIPRIL [Suspect]
     Indication: HYPERTENSION
     Dosage: 2.5 MG, 1X/DAY
     Route: 048
     Dates: start: 20110301, end: 20110915
  2. FLUTICASONE PROPIONATE [Concomitant]
     Dosage: UNK
     Dates: start: 20080101
  3. METEOSPASMYL [Concomitant]
     Dosage: UNK
  4. PARACETAMOL [Concomitant]
     Dosage: UNK
  5. DUPHALAC [Concomitant]
     Dosage: UNK
  6. SPIRIVA [Concomitant]
     Dosage: UNK
     Dates: start: 20080101
  7. SPASFON [Concomitant]
     Dosage: UNK

REACTIONS (4)
  - PANCREATITIS ACUTE [None]
  - RENAL CYST [None]
  - CHOLELITHIASIS [None]
  - SIGMOIDITIS [None]
